FAERS Safety Report 10278367 (Version 2)
Quarter: 2014Q3

REPORT INFORMATION
  Report Type: Report from Study
  Country: JP (occurrence: JP)
  Receive Date: 20140704
  Receipt Date: 20140711
  Transmission Date: 20150326
  Serious: Yes (Other)
  Sender: FDA-Public Use
  Company Number: JP-ASTRAZENECA-2014SE47356

PATIENT
  Age: 32415 Day
  Sex: Male

DRUGS (11)
  1. SANCOBA [Concomitant]
     Active Substance: CYANOCOBALAMIN
     Indication: ASTHENOPIA
     Route: 047
  2. AMLODIN [Concomitant]
     Active Substance: AMLODIPINE BESYLATE
     Indication: HYPERTENSION
     Route: 048
     Dates: start: 20140626, end: 20140629
  3. ZYVOX [Concomitant]
     Active Substance: LINEZOLID
     Indication: PNEUMONIA
     Route: 042
     Dates: start: 20140626, end: 20140627
  4. GENTACIN [Concomitant]
     Active Substance: GENTAMICIN SULFATE
     Indication: PNEUMONIA
     Route: 042
     Dates: start: 20140626, end: 20140626
  5. URIFF [Concomitant]
     Indication: PROSTATOMEGALY
     Route: 048
     Dates: start: 20140618, end: 20140629
  6. MEROPENEM. [Suspect]
     Active Substance: MEROPENEM
     Indication: PNEUMONIA
     Route: 042
     Dates: start: 20140626, end: 20140626
  7. CATALIN-K [Concomitant]
     Indication: CATARACT
     Dosage: 1 DROP
     Route: 047
  8. NEXIUM [Concomitant]
     Active Substance: ESOMEPRAZOLE MAGNESIUM
     Indication: STRESS ULCER
     Route: 048
     Dates: start: 20140618
  9. PLETAAL [Concomitant]
     Active Substance: CILOSTAZOL
     Indication: CEREBRAL INFARCTION
     Route: 048
     Dates: start: 20140618
  10. HYALEIN [Concomitant]
     Active Substance: HYALURONATE SODIUM
     Indication: DRY EYE
     Dosage: 1 DROP
     Route: 045
  11. PISULCIN [Concomitant]
     Active Substance: AMPICILLIN SODIUM\SULBACTAM SODIUM
     Indication: PNEUMONIA
     Route: 042
     Dates: start: 20140625, end: 20140626

REACTIONS (1)
  - Acute respiratory failure [Recovered/Resolved]

NARRATIVE: CASE EVENT DATE: 20140627
